FAERS Safety Report 4530911-8 (Version None)
Quarter: 2004Q4

REPORT INFORMATION
  Report Type: 
  Country: None (occurrence: None)
  Receive Date: 20041215
  Receipt Date: 20041202
  Transmission Date: 20050328
  Serious: Yes (Other)
  Sender: FDA-Public Use
  Company Number: 2004105744

PATIENT
  Age: 56 Year
  Sex: Female

DRUGS (1)
  1. CABERGOLINE TABLET (CABERGOLINE) [Suspect]
     Indication: ILL-DEFINED DISORDER
     Dosage: 9 MG (DAILY), ORAL
     Route: 048
     Dates: start: 20030901

REACTIONS (3)
  - AORTIC VALVE DISEASE [None]
  - MITRAL VALVE DISEASE [None]
  - TRICUSPID VALVE DISEASE [None]
